FAERS Safety Report 17901199 (Version 1)
Quarter: 2020Q2

REPORT INFORMATION
  Report Type: Spontaneous
  Country: SK (occurrence: SK)
  Receive Date: 20200616
  Receipt Date: 20200616
  Transmission Date: 20200714
  Serious: Yes (Hospitalization)
  Sender: FDA-Public Use
  Company Number: SK-PFIZER INC-2020232277

PATIENT
  Age: 35 Year
  Sex: Male

DRUGS (2)
  1. DALACIN C [Suspect]
     Active Substance: CLINDAMYCIN
     Indication: ERYTHEMA NODOSUM
  2. ARTHROTEC FORTE [Suspect]
     Active Substance: DICLOFENAC SODIUM\MISOPROSTOL
     Indication: HYPERURICAEMIA

REACTIONS (3)
  - Product use in unapproved indication [Unknown]
  - Rash maculo-papular [Recovered/Resolved]
  - Off label use [Unknown]
